FAERS Safety Report 15289483 (Version 2)
Quarter: 2018Q3

REPORT INFORMATION
  Report Type: Spontaneous
  Country: AR (occurrence: AR)
  Receive Date: 20180817
  Receipt Date: 20180903
  Transmission Date: 20181010
  Serious: Yes (Hospitalization)
  Sender: FDA-Public Use
  Company Number: PHHY2018AR074121

PATIENT
  Sex: Male

DRUGS (1)
  1. EXFORGE [Suspect]
     Active Substance: AMLODIPINE BESYLATE\VALSARTAN
     Indication: HYPERTENSION
     Dosage: 1 DF, (5 MG OF AMLODIPINE, 160 MG OF VALSARTAN AND 12.5 MG OF HYDROCHLOROTHIAZIDE) QD
     Route: 065
     Dates: start: 2012

REACTIONS (7)
  - Malaise [Unknown]
  - Fear [Unknown]
  - Abdominal pain upper [Unknown]
  - Dyspepsia [Unknown]
  - Prostate cancer [Recovered/Resolved]
  - Brain neoplasm [Recovered/Resolved]
  - Pain [Unknown]

NARRATIVE: CASE EVENT DATE: 2012
